FAERS Safety Report 16564199 (Version 2)
Quarter: 2025Q3

REPORT INFORMATION
  Report Type: Spontaneous
  Country: EU (occurrence: EU)
  Receive Date: 20190712
  Receipt Date: 20250723
  Transmission Date: 20251021
  Serious: Yes (Other)
  Sender: AUROBINDO
  Company Number: EU-AUROBINDO-AUR-APL-2019-039938

PATIENT

DRUGS (9)
  1. AMIODARONE [Suspect]
     Active Substance: AMIODARONE
     Indication: Tachycardia foetal
     Route: 065
  2. AMIODARONE [Suspect]
     Active Substance: AMIODARONE
     Indication: Tachycardia
  3. FLECAINIDE [Suspect]
     Active Substance: FLECAINIDE
     Indication: Tachycardia
     Route: 064
  4. FLECAINIDE [Suspect]
     Active Substance: FLECAINIDE
     Indication: Tachycardia foetal
  5. PROPRANOLOL [Suspect]
     Active Substance: PROPRANOLOL HYDROCHLORIDE
     Indication: Tachycardia foetal
     Route: 065
  6. PROPRANOLOL [Suspect]
     Active Substance: PROPRANOLOL HYDROCHLORIDE
     Indication: Tachycardia
  7. DIGOXIN [Suspect]
     Active Substance: DIGOXIN
     Indication: Tachycardia
     Route: 065
  8. DIGOXIN [Suspect]
     Active Substance: DIGOXIN
     Indication: Tachycardia foetal
     Route: 064
  9. ADENOSINE [Suspect]
     Active Substance: ADENOSINE
     Indication: Tachycardia
     Route: 065

REACTIONS (7)
  - Mitral valve incompetence [Recovering/Resolving]
  - Cardiac dysfunction [Recovering/Resolving]
  - Premature baby [Unknown]
  - Foetal exposure during pregnancy [Unknown]
  - Treatment failure [Recovered/Resolved]
  - Product use issue [Recovered/Resolved]
  - Drug ineffective [Unknown]
